FAERS Safety Report 15131480 (Version 1)
Quarter: 2018Q3

REPORT INFORMATION
  Report Type: Spontaneous
  Country: US (occurrence: US)
  Receive Date: 20180615
  Receipt Date: 20180615
  Transmission Date: 20181010
  Serious: Yes (Other)
  Sender: FDA-Public Use
  Company Number: None

PATIENT
  Age: 29 Year
  Sex: Female
  Weight: 135 kg

DRUGS (1)
  1. KYLEENA [Suspect]
     Active Substance: LEVONORGESTREL
     Indication: CONTRACEPTION
     Dates: start: 20180122

REACTIONS (4)
  - Human chorionic gonadotropin decreased [None]
  - Vaginal haemorrhage [None]
  - Pregnancy with contraceptive device [None]
  - Pregnancy test positive [None]

NARRATIVE: CASE EVENT DATE: 20180611
